FAERS Safety Report 15472408 (Version 1)
Quarter: 2018Q4

REPORT INFORMATION
  Report Type: Spontaneous
  Country: GB (occurrence: GB)
  Receive Date: 20181008
  Receipt Date: 20181008
  Transmission Date: 20190205
  Serious: Yes (Other)
  Sender: FDA-Public Use
  Company Number: GB-DRREDDYS-GER/UKI/18/0104406

PATIENT
  Age: 25 Year
  Sex: Female

DRUGS (3)
  1. ZONISAMIDE. [Suspect]
     Active Substance: ZONISAMIDE
     Indication: IDIOPATHIC INTRACRANIAL HYPERTENSION
     Route: 048
     Dates: start: 20180710
  2. ZONISAMIDE. [Suspect]
     Active Substance: ZONISAMIDE
     Route: 048
     Dates: end: 20180907
  3. SERTRALINE [Concomitant]
     Active Substance: SERTRALINE HYDROCHLORIDE
     Indication: PRODUCT USED FOR UNKNOWN INDICATION

REACTIONS (5)
  - Cough [Unknown]
  - Pyrexia [Recovering/Resolving]
  - Stevens-Johnson syndrome [Not Recovered/Not Resolved]
  - Diarrhoea [Recovered/Resolved]
  - Vomiting [Recovered/Resolved]
